FAERS Safety Report 9027113 (Version 1)
Quarter: 2013Q1

REPORT INFORMATION
  Report Type: Spontaneous
  Country: US (occurrence: US)
  Receive Date: 20130123
  Receipt Date: 20130123
  Transmission Date: 20140127
  Serious: No
  Sender: FDA-Public Use
  Company Number: US-TARO-2012P1056016

PATIENT
  Age: 62 Year
  Sex: Female
  Weight: 99.79 kg

DRUGS (13)
  1. CLOBETASOL PROPIONATE [Suspect]
     Route: 067
     Dates: start: 201208, end: 20120831
  2. CLOBETASOL PROPIONATE [Suspect]
     Route: 067
     Dates: start: 201208, end: 20120831
  3. TRIAMCINOLONE ACETONIDE [Suspect]
     Indication: VULVOVAGINAL PRURITUS
     Route: 061
     Dates: start: 201202
  4. HUMIRA [Concomitant]
  5. PREDNISONE [Concomitant]
  6. ATARAX [Concomitant]
     Indication: PRURITUS
  7. BENTYL [Concomitant]
  8. HYDROCODONE [Concomitant]
     Indication: PAIN
  9. NEURONTIN [Concomitant]
     Indication: PAIN
  10. FLEXERIL [Concomitant]
     Indication: MUSCLE SPASMS
  11. DYAZIDE [Concomitant]
  12. AMBIEN [Concomitant]
  13. LORATADINE [Concomitant]

REACTIONS (5)
  - Drug administration error [Recovered/Resolved]
  - Application site irritation [Recovering/Resolving]
  - Nasopharyngitis [Not Recovered/Not Resolved]
  - Application site dryness [Recovering/Resolving]
  - Skin disorder [Recovering/Resolving]
